FAERS Safety Report 19097605 (Version 1)
Quarter: 2021Q2

REPORT INFORMATION
  Report Type: Spontaneous
  Country: US (occurrence: US)
  Receive Date: 20210406
  Receipt Date: 20210406
  Transmission Date: 20210717
  Serious: Yes (Hospitalization, Other)
  Sender: FDA-Public Use
  Company Number: US-GLAXOSMITHKLINE-US2021074443

PATIENT
  Age: 69 Year
  Sex: Male

DRUGS (1)
  1. BREO ELLIPTA [Suspect]
     Active Substance: FLUTICASONE FUROATE\VILANTEROL TRIFENATATE
     Indication: PRODUCT USED FOR UNKNOWN INDICATION
     Dosage: UNK, USE 1 INHALATION BY MOUTH DAILY
     Route: 055
     Dates: start: 201904

REACTIONS (2)
  - Sepsis [Unknown]
  - Fascioliasis [Recovered/Resolved]

NARRATIVE: CASE EVENT DATE: 202102
